FAERS Safety Report 17558715 (Version 4)
Quarter: 2020Q4

REPORT INFORMATION
  Report Type: Report from Study
  Country: NL (occurrence: NL)
  Receive Date: 20200318
  Receipt Date: 20201008
  Transmission Date: 20210113
  Serious: Yes (Other)
  Sender: FDA-Public Use
  Company Number: NL-INCYTE CORPORATION-2019IN000162

PATIENT

DRUGS (24)
  1. PROPOFOL. [Concomitant]
     Active Substance: PROPOFOL
     Indication: ENDOSCOPIC RETROGRADE CHOLANGIOPANCREATOGRAPHY
     Dosage: 2 OT
     Route: 065
     Dates: start: 20190614, end: 20190614
  2. DICLOFENAC [Concomitant]
     Active Substance: DICLOFENAC
     Indication: ENDOSCOPIC RETROGRADE CHOLANGIOPANCREATOGRAPHY
     Dosage: 100 OT
     Route: 065
     Dates: start: 20190614, end: 20190614
  3. DIPIDOLOR [Concomitant]
     Active Substance: PIRITRAMIDE
     Indication: ENDOSCOPIC RETROGRADE CHOLANGIOPANCREATOGRAPHY
     Dosage: 5 OT
     Route: 065
     Dates: start: 20190614, end: 20190614
  4. DIPIDOLOR [Concomitant]
     Active Substance: PIRITRAMIDE
     Indication: DUODENAL SPHINCTEROTOMY
  5. JAKAVI [Suspect]
     Active Substance: RUXOLITINIB
     Indication: POLYCYTHAEMIA VERA
     Dosage: 10 OT
     Route: 048
     Dates: start: 20180226, end: 20180312
  6. ATORVASTATINE [ATORVASTATIN] [Concomitant]
     Active Substance: ATORVASTATIN
     Indication: PROPHYLAXIS
     Dosage: 40 OT
     Route: 065
     Dates: start: 20121119
  7. ESOMEPRAZOLE. [Concomitant]
     Active Substance: ESOMEPRAZOLE MAGNESIUM
     Indication: PROPHYLAXIS
     Dosage: 40 OT
     Route: 065
     Dates: start: 20121119
  8. JAKAVI [Suspect]
     Active Substance: RUXOLITINIB
     Dosage: 20 OT
     Route: 048
     Dates: start: 20180529
  9. CEFAZOLINE [Concomitant]
     Active Substance: CEFAZOLIN SODIUM
     Indication: CHOLECYSTECTOMY
     Dosage: 2000 OT
     Route: 065
     Dates: start: 20190702, end: 20190702
  10. CEFAZOLINE [Concomitant]
     Active Substance: CEFAZOLIN SODIUM
     Indication: ANTIBIOTIC PROPHYLAXIS
     Dosage: 2000 OT
     Route: 065
     Dates: start: 20190920, end: 20190920
  11. DIPIDOLOR [Concomitant]
     Active Substance: PIRITRAMIDE
     Indication: CHOLELITHOTOMY
  12. VERAPAMIL [Concomitant]
     Active Substance: VERAPAMIL HYDROCHLORIDE
     Indication: ANGIOCARDIOGRAM
     Dosage: 5 OT
     Route: 065
     Dates: start: 20190510, end: 20190510
  13. PEGASYS [Concomitant]
     Active Substance: PEGINTERFERON ALFA-2A
     Indication: POLYCYTHAEMIA VERA
     Dosage: 90 OT
     Route: 065
     Dates: start: 20060301, end: 200809
  14. PEGASYS [Concomitant]
     Active Substance: PEGINTERFERON ALFA-2A
     Dosage: 45 OT
     Route: 065
     Dates: start: 20100823, end: 20110421
  15. CARBAMAZEPINE. [Concomitant]
     Active Substance: CARBAMAZEPINE
     Indication: POLYNEUROPATHY
     Dosage: 200 OT
     Route: 065
     Dates: start: 20110214
  16. PROPOFOL. [Concomitant]
     Active Substance: PROPOFOL
     Indication: CHOLECYSTECTOMY
     Dosage: 200 OT
     Route: 065
     Dates: start: 20190920, end: 20190920
  17. GRANISETRON [Concomitant]
     Active Substance: GRANISETRON
     Indication: PROPHYLAXIS
     Dosage: 1 OT
     Route: 065
     Dates: start: 20190614, end: 20190614
  18. ISOSORBID DINITRATE [Concomitant]
     Active Substance: ISOSORBIDE DINITRATE
     Indication: ANGIOCARDIOGRAM
     Dosage: 0.2 OT
     Route: 065
     Dates: start: 20190510, end: 20190510
  19. OXYCODON [Concomitant]
     Active Substance: OXYCODONE
     Indication: CHOLECYSTECTOMY
     Dosage: 5 OT
     Route: 065
     Dates: start: 20190920, end: 20190926
  20. STEROFUNDIN [Concomitant]
     Active Substance: CALCIUM CHLORIDE\MAGNESIUM CHLORIDE\POTASSIUM CHLORIDE\SODIUM ACETATE\SODIUM CHLORIDE
     Indication: CHOLECYSTECTOMY
     Dosage: 500 OT
     Route: 065
     Dates: start: 20190920, end: 20190921
  21. SUFENTANIL [Concomitant]
     Active Substance: SUFENTANIL
     Indication: CHOLECYSTECTOMY
     Dosage: 25 OT
     Route: 065
     Dates: start: 20190920, end: 20190920
  22. JAKAVI [Suspect]
     Active Substance: RUXOLITINIB
     Dosage: 15 OT
     Route: 048
     Dates: start: 20180313, end: 20180528
  23. ASCAL [ACETYLSALICYLATE CALCIUM] [Concomitant]
     Active Substance: ASPIRIN CALCIUM
     Indication: ERYTHROMELALGIA
     Dosage: 80 OT, UNK
     Route: 065
     Dates: start: 19890615
  24. NADROPARINE [Concomitant]
     Active Substance: NADROPARIN
     Indication: CHOLECYSTECTOMY
     Dosage: 5700 OT
     Route: 065
     Dates: start: 20190921, end: 20191104

REACTIONS (28)
  - Nasopharyngitis [Recovered/Resolved]
  - Diabetes mellitus [Not Recovered/Not Resolved]
  - Diarrhoea [Recovered/Resolved]
  - Hypertension [Not Recovered/Not Resolved]
  - Drug ineffective [Recovered/Resolved]
  - Arthralgia [Not Recovered/Not Resolved]
  - Urinary tract infection [Recovered/Resolved]
  - Transaminases increased [Unknown]
  - Pyrexia [Unknown]
  - Pharyngitis [Recovered/Resolved]
  - Sleep apnoea syndrome [Not Recovered/Not Resolved]
  - Bradycardia [Recovered/Resolved]
  - Cholangitis [Recovered/Resolved]
  - Sepsis [Recovered/Resolved]
  - Urinary tract infection [Recovered/Resolved]
  - Abdominal pain [Unknown]
  - Abdominal distension [Recovered/Resolved]
  - Gingival pain [Recovered/Resolved]
  - Herpes zoster [Recovered/Resolved]
  - Sleep apnoea syndrome [Recovered/Resolved]
  - Blood bilirubin increased [Unknown]
  - Respiratory tract infection [Recovered/Resolved]
  - Oropharyngeal pain [Recovered/Resolved]
  - Dyspnoea [Recovered/Resolved]
  - Cholelithiasis [Recovered/Resolved]
  - Hypertension [Recovered/Resolved]
  - Respiratory tract infection [Recovered/Resolved]
  - Weight increased [Not Recovered/Not Resolved]

NARRATIVE: CASE EVENT DATE: 20180312
